FAERS Safety Report 19855239 (Version 1)
Quarter: 2021Q3

REPORT INFORMATION
  Report Type: Other
  Country: DE (occurrence: DE)
  Receive Date: 20210920
  Receipt Date: 20210920
  Transmission Date: 20211014
  Serious: Yes (Hospitalization)
  Sender: FDA-Public Use
  Company Number: DE-ROCHE-2909016

PATIENT
  Age: 77 Year
  Sex: Male
  Weight: 86 kg

DRUGS (7)
  1. PROPRANOLOL [Concomitant]
     Active Substance: PROPRANOLOL HYDROCHLORIDE
     Dates: start: 2020
  2. METAMIZOL [Concomitant]
     Active Substance: METAMIZOLE SODIUM
     Dates: start: 202010
  3. RAMIPRIL. [Concomitant]
     Active Substance: RAMIPRIL
     Dates: start: 2020
  4. RIFAXIMIN. [Concomitant]
     Active Substance: RIFAXIMIN
     Dates: start: 2020, end: 2021
  5. ATEZOLIZUMAB. [Suspect]
     Active Substance: ATEZOLIZUMAB
     Indication: HEPATOCELLULAR CARCINOMA
     Dosage: LAST DOSE ADMINISTERED PRIOR TO SAE:07/APR/2021 ,03/FEB/2021
     Route: 065
     Dates: start: 20210203, end: 20210407
  6. BEVACIZUMAB. [Suspect]
     Active Substance: BEVACIZUMAB
     Indication: HEPATOCELLULAR CARCINOMA
     Dosage: LAST DOSE ADMINISTERED PRIOR TO SAE:07/APR/2021
     Route: 065
     Dates: start: 20210203, end: 20210407
  7. LACTULOSE. [Concomitant]
     Active Substance: LACTULOSE
     Dates: start: 202010

REACTIONS (1)
  - General physical health deterioration [Recovered/Resolved]

NARRATIVE: CASE EVENT DATE: 20210412
